FAERS Safety Report 4649716-2 (Version None)
Quarter: 2005Q2

REPORT INFORMATION
  Report Type: 
  Country: None (occurrence: None)
  Receive Date: 20050427
  Receipt Date: 20050406
  Transmission Date: 20051028
  Serious: Yes (Hospitalization, Other)
  Sender: FDA-Public Use
  Company Number: US_0504115356

PATIENT
  Age: 77 Year
  Sex: Male
  Weight: 86 kg

DRUGS (7)
  1. ALIMTA [Suspect]
     Indication: NON-SMALL CELL LUNG CANCER
     Dosage: 1000 MG
  2. FOLIC ACID [Concomitant]
  3. VITAMIN B-12 [Concomitant]
  4. PLAVIX [Concomitant]
  5. PROTONIX [Concomitant]
  6. METOPROLOL [Concomitant]
  7. MULTI-VITAMIN [Concomitant]

REACTIONS (2)
  - ATRIAL FIBRILLATION [None]
  - MYOCARDIAL INFARCTION [None]
